FAERS Safety Report 4871927-1 (Version None)
Quarter: 2006Q1

REPORT INFORMATION
  Report Type: 
  Country: None (occurrence: None)
  Receive Date: 20051230
  Receipt Date: 20051219
  Transmission Date: 20060701
  Serious: Yes (Hospitalization, Other)
  Sender: FDA-Public Use
  Company Number: 358-0981-M000032

PATIENT
  Age: 78 Year
  Sex: Female
  Weight: 56.8 kg

DRUGS (3)
  1. ATORVASTATIN CALCIUM [Suspect]
     Indication: CEREBROVASCULAR DISORDER
     Dosage: 80 MG (80 MG 1 IN 1 D) ORAL
     Route: 048
     Dates: start: 20000322, end: 20000426
  2. ASPIRIN [Concomitant]
  3. CANDESARTAN(CANDESARTAN) [Concomitant]

REACTIONS (5)
  - ALANINE AMINOTRANSFERASE INCREASED [None]
  - ASPARTATE AMINOTRANSFERASE INCREASED [None]
  - BLOOD ALKALINE PHOSPHATASE INCREASED [None]
  - CHOLECYSTITIS [None]
  - CHOLELITHIASIS [None]
